FAERS Safety Report 8227540-1 (Version None)
Quarter: 2012Q1

REPORT INFORMATION
  Report Type: 
  Country: None (occurrence: None)
  Receive Date: 20120322
  Receipt Date: 20120315
  Transmission Date: 20120608
  Serious: Yes (Other)
  Sender: FDA-Public Use
  Company Number: CN-ASTELLAS-2012US002781

PATIENT
  Age: 88 Year
  Sex: Female
  Weight: 41 kg

DRUGS (3)
  1. TARCEVA [Suspect]
     Indication: LUNG ADENOCARCINOMA
     Dosage: 150 MG, UID/QD
     Route: 048
     Dates: start: 20120105
  2. TARCEVA [Suspect]
     Dosage: 150 MG, UID/QD
     Route: 048
     Dates: start: 20120315
  3. TARCEVA [Suspect]
     Dosage: 100 MG, UID/QD
     Route: 048
     Dates: end: 20120314

REACTIONS (3)
  - NAUSEA [None]
  - PLEURAL EFFUSION [None]
  - FATIGUE [None]
